FAERS Safety Report 16324197 (Version 1)
Quarter: 2019Q2

REPORT INFORMATION
  Report Type: Other
  Country: DE (occurrence: DE)
  Receive Date: 20190517
  Receipt Date: 20190517
  Transmission Date: 20190711
  Serious: No
  Sender: FDA-Public Use
  Company Number: DE-LUPIN PHARMACEUTICALS INC.-2019-01218

PATIENT
  Age: 35 Year
  Sex: Female
  Weight: 66 kg

DRUGS (2)
  1. QUETIAPINE FUMARATE. [Suspect]
     Active Substance: QUETIAPINE FUMARATE
     Indication: BIPOLAR I DISORDER
     Dosage: 25 MILLIGRAM
     Route: 048
     Dates: start: 201808
  2. SERTRALINE [Concomitant]
     Active Substance: SERTRALINE HYDROCHLORIDE
     Indication: DEPRESSION
     Dosage: 100 MILLIGRAM
     Route: 065
     Dates: start: 201709

REACTIONS (2)
  - Nail growth abnormal [Unknown]
  - Hair growth abnormal [Unknown]

NARRATIVE: CASE EVENT DATE: 20190211
